FAERS Safety Report 5398915-3 (Version None)
Quarter: 2007Q3

REPORT INFORMATION
  Report Type: 
  Country: None (occurrence: None)
  Receive Date: 20070724
  Receipt Date: 20070724
  Transmission Date: 20080115
  Serious: Yes (Hospitalization)
  Sender: FDA-Public Use
  Company Number: None

PATIENT
  Age: 86 Year
  Sex: Male

DRUGS (2)
  1. ASPIRIN [Suspect]
     Indication: CARDIOVASCULAR EVENT PROPHYLAXIS
     Dosage: 81MG EVERY DAY PO
     Route: 048
     Dates: start: 20041014
  2. NAPROXEN [Suspect]
     Dosage: 500MG BID PO
     Route: 048
     Dates: start: 20000302

REACTIONS (1)
  - GASTRIC ULCER HAEMORRHAGE [None]
